FAERS Safety Report 23584999 (Version 1)
Quarter: 2024Q1

REPORT INFORMATION
  Report Type: Spontaneous
  Country: GB (occurrence: GB)
  Receive Date: 20240301
  Receipt Date: 20240301
  Transmission Date: 20240410
  Serious: Yes (Disabling, Other)
  Sender: FDA-Public Use
  Company Number: None

PATIENT
  Sex: Female

DRUGS (1)
  1. HYDROCORTISONE [Suspect]
     Active Substance: HYDROCORTISONE
     Indication: Product used for unknown indication
     Route: 065
     Dates: end: 20231226

REACTIONS (16)
  - Skin swelling [Not Recovered/Not Resolved]
  - Skin weeping [Not Recovered/Not Resolved]
  - Alopecia [Recovering/Resolving]
  - Pyrexia [Recovered/Resolved]
  - Pruritus [Not Recovered/Not Resolved]
  - Paraesthesia [Not Recovered/Not Resolved]
  - Skin infection [Recovered/Resolved]
  - Skin exfoliation [Not Recovered/Not Resolved]
  - Vision blurred [Not Recovered/Not Resolved]
  - Erythema [Not Recovered/Not Resolved]
  - Skin abrasion [Not Recovered/Not Resolved]
  - Weight decreased [Not Recovered/Not Resolved]
  - Skin burning sensation [Not Recovered/Not Resolved]
  - Medication error [Unknown]
  - Skin wrinkling [Not Recovered/Not Resolved]
  - Insomnia [Not Recovered/Not Resolved]

NARRATIVE: CASE EVENT DATE: 20230617
